FAERS Safety Report 5708326-6 (Version None)
Quarter: 2008Q2

REPORT INFORMATION
  Report Type: 
  Country: None (occurrence: None)
  Receive Date: 20080417
  Receipt Date: 20080415
  Transmission Date: 20081010
  Serious: Yes (Disabling)
  Sender: FDA-Public Use
  Company Number: US-KINGPHARMUSA00001-K200800434

PATIENT

DRUGS (4)
  1. ALTACE [Suspect]
     Indication: HYPERTENSION
     Dosage: 5 MG, QD
     Route: 048
     Dates: start: 20070806, end: 20080209
  2. BENDROFLUMETHIAZIDE [Concomitant]
     Indication: HYPERTENSION
     Dosage: 2.5 MG, UNK
     Route: 048
  3. CORACTEN [Concomitant]
     Indication: HYPERTENSION
     Dosage: 60 MG, UNK
     Route: 048
  4. FUROSEMIDE [Concomitant]
     Indication: HYPERTENSION
     Dosage: 20 MG, UNK
     Route: 048

REACTIONS (1)
  - LICHEN PLANUS [None]
